FAERS Safety Report 8252787 (Version 2)
Quarter: 2013Q4

REPORT INFORMATION
  Report Type: Spontaneous
  Country: US (occurrence: US)
  Receive Date: 20111118
  Receipt Date: 20131202
  Transmission Date: 20140711
  Serious: No
  Sender: FDA-Public Use
  Company Number: US-AMGEN-USASP2011017386

PATIENT
  Age: 52 Year
  Sex: Male

DRUGS (1)
  1. ENBREL [Suspect]
     Indication: PSORIATIC ARTHROPATHY
     Dosage: UNK
     Route: 065
     Dates: start: 2006

REACTIONS (5)
  - Gingival inflammation [Not Recovered/Not Resolved]
  - Arthralgia [Unknown]
  - Joint effusion [Unknown]
  - Musculoskeletal pain [Unknown]
  - Nasopharyngitis [Unknown]
